FAERS Safety Report 4618214-4 (Version None)
Quarter: 2005Q1

REPORT INFORMATION
  Report Type: 
  Country: None (occurrence: None)
  Receive Date: 20050324
  Receipt Date: 20050314
  Transmission Date: 20050727
  Serious: Yes (Other)
  Sender: FDA-Public Use
  Company Number: GB-ABBOTT-05P-167-0294214-00

PATIENT
  Age: 48 Year
  Sex: Female

DRUGS (3)
  1. ERYTHROMYCIN [Suspect]
     Indication: DRUG USE FOR UNKNOWN INDICATION
  2. PREMPAK/OLD FORM [Suspect]
     Indication: DRUG USE FOR UNKNOWN INDICATION
  3. ANTIDEPRESSANTS [Concomitant]
     Indication: DRUG USE FOR UNKNOWN INDICATION

REACTIONS (11)
  - ACCIDENT [None]
  - DRUG INTERACTION [None]
  - DRY EYE [None]
  - EYE DISORDER [None]
  - EYE INFLAMMATION [None]
  - EYE PAIN [None]
  - EYE SWELLING [None]
  - IMPAIRED WORK ABILITY [None]
  - PAIN [None]
  - THINKING ABNORMAL [None]
  - VISUAL ACUITY REDUCED [None]
